FAERS Safety Report 13166929 (Version 1)
Quarter: 2017Q1

REPORT INFORMATION
  Report Type: Report from Study
  Country: DE (occurrence: DE)
  Receive Date: 20170131
  Receipt Date: 20170131
  Transmission Date: 20170428
  Serious: Yes (Hospitalization)
  Sender: FDA-Public Use
  Company Number: DE-BIOGEN-2017BI00350752

PATIENT
  Age: 49 Year
  Sex: Male
  Weight: 84 kg

DRUGS (12)
  1. FENTANYL. [Concomitant]
     Active Substance: FENTANYL
     Indication: RESTLESS LEGS SYNDROME
     Dosage: MICRO/HOUR
     Route: 062
     Dates: start: 20161101
  2. LYRICA [Concomitant]
     Active Substance: PREGABALIN
     Indication: PARAESTHESIA
     Route: 048
     Dates: start: 20140702, end: 20150406
  3. ZOPICLON [Concomitant]
     Active Substance: ZOPICLONE
     Indication: RESTLESS LEGS SYNDROME
     Route: 048
     Dates: start: 20091103
  4. VALSARTAN. [Concomitant]
     Active Substance: VALSARTAN
     Indication: HYPERTENSION
     Route: 048
     Dates: start: 20150409
  5. PREGABADOR [Concomitant]
     Indication: PARAESTHESIA
     Route: 048
     Dates: start: 20150407
  6. PALEXIA [Concomitant]
     Active Substance: TAPENTADOL HYDROCHLORIDE
     Indication: RESTLESS LEGS SYNDROME
     Route: 048
     Dates: start: 20160202, end: 20161101
  7. TYSABRI [Suspect]
     Active Substance: NATALIZUMAB
     Indication: MULTIPLE SCLEROSIS
     Dosage: INFUSED OVER 1 HOUR
     Route: 042
     Dates: start: 20070205, end: 20161010
  8. APYDAN EXTENT [Concomitant]
     Active Substance: OXCARBAZEPINE
     Indication: MUSCLE TWITCHING
     Route: 065
     Dates: start: 20151103, end: 20161101
  9. EFFENTORA [Concomitant]
     Active Substance: FENTANYL CITRATE
     Indication: RESTLESS LEGS SYNDROME
     Route: 002
     Dates: start: 20120627, end: 20161101
  10. EFFENTORA [Concomitant]
     Active Substance: FENTANYL CITRATE
     Route: 002
     Dates: start: 20161101
  11. VELMETIA [Concomitant]
     Active Substance: METFORMIN\SITAGLIPTIN
     Indication: DIABETES MELLITUS
     Dosage: 50/1000
     Route: 048
     Dates: start: 20140521
  12. TARGIN [Concomitant]
     Active Substance: NALOXONE HYDROCHLORIDE\OXYCODONE HYDROCHLORIDE
     Indication: RESTLESS LEGS SYNDROME
     Route: 048
     Dates: start: 20151201, end: 20160202

REACTIONS (1)
  - Drug withdrawal syndrome [Recovered/Resolved]

NARRATIVE: CASE EVENT DATE: 20161028
